FAERS Safety Report 11813498 (Version 1)
Quarter: 2015Q4

REPORT INFORMATION
  Report Type: Spontaneous
  Country: NL (occurrence: NL)
  Receive Date: 20151209
  Receipt Date: 20151209
  Transmission Date: 20160305
  Serious: Yes (Life-Threatening)
  Sender: FDA-Public Use
  Company Number: NL-ROXANE LABORATORIES, INC.-2015-RO-02033RO

PATIENT
  Age: 5 Month
  Sex: Male

DRUGS (5)
  1. CARVEDILOL. [Concomitant]
     Active Substance: CARVEDILOL
     Indication: CARDIAC FAILURE
     Route: 065
  2. DIGOXIN. [Suspect]
     Active Substance: DIGOXIN
     Indication: CARDIAC FAILURE
     Route: 065
  3. BUMETANIDE. [Concomitant]
     Active Substance: BUMETANIDE
     Indication: CARDIAC FAILURE
     Route: 065
  4. SPIRONOLACTONE. [Concomitant]
     Active Substance: SPIRONOLACTONE
     Indication: CARDIAC FAILURE
     Route: 065
  5. CAPTOPRIL. [Concomitant]
     Active Substance: CAPTOPRIL
     Indication: CARDIAC FAILURE
     Route: 065

REACTIONS (2)
  - Incorrect dose administered [Recovered/Resolved]
  - Toxicity to various agents [Recovered/Resolved]
